FAERS Safety Report 9025099 (Version 1)
Quarter: 2013Q1

REPORT INFORMATION
  Report Type: Spontaneous
  Country: GB (occurrence: GB)
  Receive Date: 20130121
  Receipt Date: 20130121
  Transmission Date: 20140127
  Serious: Yes (Other)
  Sender: FDA-Public Use
  Company Number: GB-TEVA-380318ISR

PATIENT
  Sex: Male

DRUGS (2)
  1. CITALOPRAM [Suspect]
  2. CITALOPRAM [Suspect]

REACTIONS (3)
  - Tinnitus [Unknown]
  - Chills [Unknown]
  - Withdrawal syndrome [Unknown]
